FAERS Safety Report 17005576 (Version 4)
Quarter: 2022Q2

REPORT INFORMATION
  Report Type: Report from Study
  Country: IT (occurrence: None)
  Receive Date: 20191107
  Receipt Date: 20220603
  Transmission Date: 20220720
  Serious: Yes (Hospitalization)
  Sender: FDA-Public Use
  Company Number: IT-ROCHE-2453820

PATIENT
  Age: 64 Year
  Sex: Male

DRUGS (6)
  1. TRASTUZUMAB [Suspect]
     Active Substance: TRASTUZUMAB
     Indication: HER2 positive gastric cancer
     Route: 041
     Dates: start: 20190703, end: 20190827
  2. PERTUZUMAB [Suspect]
     Active Substance: PERTUZUMAB
     Indication: HER2 positive gastric cancer
     Route: 042
     Dates: start: 20190703, end: 20190827
  3. CISPLATIN [Suspect]
     Active Substance: CISPLATIN
     Indication: HER2 positive gastric cancer
     Route: 042
     Dates: start: 20190703, end: 20190827
  4. FLUOROURACIL [Suspect]
     Active Substance: FLUOROURACIL
     Indication: HER2 positive gastric cancer
     Route: 042
     Dates: start: 20190703, end: 20190827
  5. PIPERACILLIN SODIUM\TAZOBACTAM SODIUM [Concomitant]
     Active Substance: PIPERACILLIN SODIUM\TAZOBACTAM SODIUM
     Indication: Retinitis
     Dosage: 0.5 G
     Route: 042
     Dates: start: 20191021, end: 20191030
  6. LEVOFLOXACIN [Concomitant]
     Active Substance: LEVOFLOXACIN
     Indication: Retinitis
     Route: 042
     Dates: start: 20191021, end: 20191030

REACTIONS (3)
  - Pneumothorax [Not Recovered/Not Resolved]
  - Pneumonitis [Not Recovered/Not Resolved]
  - Bronchial fistula [Recovered/Resolved]

NARRATIVE: CASE EVENT DATE: 20191021
